FAERS Safety Report 7179825-8 (Version None)
Quarter: 2010Q4

REPORT INFORMATION
  Report Type: 
  Country: None (occurrence: None)
  Receive Date: 20101221
  Receipt Date: 20101210
  Transmission Date: 20110411
  Serious: Yes (Other)
  Sender: FDA-Public Use
  Company Number: GB-BRISTOL-MYERS SQUIBB COMPANY-15449168

PATIENT
  Age: 25 Year
  Sex: Male

DRUGS (1)
  1. MITOTANE [Suspect]
     Indication: ADRENOCORTICAL CARCINOMA

REACTIONS (3)
  - GYNAECOMASTIA [None]
  - HYPOGONADISM [None]
  - URINE ANALYSIS ABNORMAL [None]
